FAERS Safety Report 7513374-X (Version None)
Quarter: 2011Q2

REPORT INFORMATION
  Report Type: 
  Country: None (occurrence: None)
  Receive Date: 20110525
  Receipt Date: 20110525
  Transmission Date: 20111010
  Serious: Yes (Life-Threatening, Hospitalization, Disabling, Other)
  Sender: FDA-Public Use
  Company Number: None

PATIENT
  Age: 81 Year
  Sex: Female
  Weight: 58.0604 kg

DRUGS (1)
  1. INTRON A [Suspect]
     Indication: RENAL CANCER
     Dosage: 3ML INJECTION 3X WEEK INJECTION
     Dates: start: 19991129, end: 20011023

REACTIONS (1)
  - UNEVALUABLE EVENT [None]
